FAERS Safety Report 19363110 (Version 2)
Quarter: 2021Q3

REPORT INFORMATION
  Report Type: Report from Study
  Country: DE (occurrence: DE)
  Receive Date: 20210603
  Receipt Date: 20210825
  Transmission Date: 20211014
  Serious: Yes (Hospitalization)
  Sender: FDA-Public Use
  Company Number: DE-CELLTRION INC.-2021DE006554

PATIENT

DRUGS (16)
  1. DOCETAXEL. [Suspect]
     Active Substance: DOCETAXEL
     Indication: GASTRIC CANCER
     Dosage: 97.4 MG, EVERY 2 WEEKS
     Route: 042
     Dates: start: 20210111
  2. TRASTUZUMAB (UNKNOWN) [Suspect]
     Active Substance: TRASTUZUMAB
     Indication: GASTRIC CANCER
     Dosage: 840 MG, EVERY 3 WEEKS
     Route: 042
     Dates: start: 20210111
  3. FLUOROURACIL. [Suspect]
     Active Substance: FLUOROURACIL
     Dosage: 3799.6 MG
     Route: 042
  4. CISPLATIN. [Suspect]
     Active Substance: CISPLATIN
     Indication: GASTRIC CANCER
     Dosage: EVERY 3 WEEKS
     Route: 042
  5. CAPECITABINE. [Suspect]
     Active Substance: CAPECITABINE
     Indication: GASTRIC CANCER
     Dosage: D1?14 IN 3 WEEKLY SCHEDULE (1000 MG/M2/DAY)
     Route: 048
  6. PERTUZUMAB. [Suspect]
     Active Substance: PERTUZUMAB
     Indication: GASTRIC CANCER
     Dosage: 840 MG, EVERY 3 WEEKS
     Route: 042
  7. VOMEX [Concomitant]
     Active Substance: DIMENHYDRINATE
     Dosage: 50 MG
     Route: 048
     Dates: start: 20210123, end: 20210124
  8. OXALIPLATIN. [Suspect]
     Active Substance: OXALIPLATIN
     Indication: GASTRIC CANCER
     Dosage: 165.6 MG
     Route: 042
     Dates: start: 20210111
  9. PERTUZUMAB. [Suspect]
     Active Substance: PERTUZUMAB
     Dosage: 640 MG, EVERY 3 WEEKS
     Route: 042
     Dates: start: 20210111
  10. DOCETAXEL. [Suspect]
     Active Substance: DOCETAXEL
     Dosage: 77.1 MG, EVERY 2 WEEKS
     Route: 042
  11. LEUCOVORIN [FOLINIC ACID] [Suspect]
     Active Substance: LEUCOVORIN
     Indication: GASTRIC CANCER
     Dosage: 389.6 MG, EVERY 2 WEEKS
     Route: 042
     Dates: start: 20210111
  12. LEUCOVORIN [FOLINIC ACID] [Suspect]
     Active Substance: LEUCOVORIN
     Dosage: 292.2 MG, EVERY 2 WEEKS
     Route: 042
  13. DOCETAXEL. [Suspect]
     Active Substance: DOCETAXEL
     Dosage: 73.1 MG, EVERY 2 WEEKS
     Route: 042
  14. TRASTUZUMAB (UNKNOWN) [Suspect]
     Active Substance: TRASTUZUMAB
     Dosage: 480 MG
     Route: 042
  15. OXALIPLATIN. [Suspect]
     Active Substance: OXALIPLATIN
     Dosage: 124.2 MG
     Route: 042
  16. FLUOROURACIL. [Suspect]
     Active Substance: FLUOROURACIL
     Indication: GASTRIC CANCER
     Dosage: 5064.8 MG
     Route: 042
     Dates: start: 20210111

REACTIONS (2)
  - Diarrhoea [Recovered/Resolved]
  - Overdose [Unknown]

NARRATIVE: CASE EVENT DATE: 20210119
